FAERS Safety Report 19267333 (Version 1)
Quarter: 2021Q2

REPORT INFORMATION
  Report Type: Spontaneous
  Country: CN (occurrence: CN)
  Receive Date: 20210518
  Receipt Date: 20210518
  Transmission Date: 20210717
  Serious: Yes (Death)
  Sender: FDA-Public Use
  Company Number: CN-ASTRAZENECA-2021A427216

PATIENT
  Age: 72 Year
  Sex: Male
  Weight: 56 kg

DRUGS (1)
  1. IMFINZI [Suspect]
     Active Substance: DURVALUMAB
     Indication: NON-SMALL CELL LUNG CANCER STAGE III
     Dosage: 500 MG/CYCLE
     Route: 042
     Dates: start: 20201022, end: 20201111

REACTIONS (1)
  - Death [Fatal]

NARRATIVE: CASE EVENT DATE: 20210504
